FAERS Safety Report 25788405 (Version 2)
Quarter: 2025Q4

REPORT INFORMATION
  Report Type: Spontaneous
  Country: CA (occurrence: CA)
  Receive Date: 20250910
  Receipt Date: 20251104
  Transmission Date: 20260117
  Serious: Yes (Hospitalization, Other)
  Sender: PFIZER
  Company Number: CA-PFIZER INC-202300107028

PATIENT
  Age: 66 Year
  Sex: Female
  Weight: 70 kg

DRUGS (21)
  1. RUXIENCE [Suspect]
     Active Substance: RITUXIMAB-PVVR
     Indication: Granulomatosis with polyangiitis
     Dosage: 300 MG,SUPPOSED TO RECEIVE 1000 MG, DAY 1 AND DAY 15
     Route: 042
     Dates: start: 20230320
  2. RUXIENCE [Suspect]
     Active Substance: RITUXIMAB-PVVR
     Dosage: 1000 MG,DAY 1 AND DAY 15
     Route: 042
     Dates: start: 20230320, end: 20230404
  3. RUXIENCE [Suspect]
     Active Substance: RITUXIMAB-PVVR
     Dosage: 500 MG,DAY 1
     Route: 042
     Dates: start: 20231005, end: 20231005
  4. RUXIENCE [Suspect]
     Active Substance: RITUXIMAB-PVVR
     Dosage: 500 MG,EVERY 6 MONTHS (500 MG, 24 WEEKS AND 4 DAYS)
     Route: 042
     Dates: start: 20240325, end: 20240325
  5. RUXIENCE [Suspect]
     Active Substance: RITUXIMAB-PVVR
     Dosage: 500 MG,EVERY 6 MONTHS (500 MG, 24 WEEKS AND 4 DAYS)
     Route: 042
     Dates: start: 20241007, end: 20241007
  6. RUXIENCE [Suspect]
     Active Substance: RITUXIMAB-PVVR
     Dosage: 500 MG,16 WEEKS AND 1 DAY (EVERY 6 MONTH, SINGLE DOSE)
     Route: 042
     Dates: start: 20250128
  7. RUXIENCE [Suspect]
     Active Substance: RITUXIMAB-PVVR
     Dosage: 1 DF
     Route: 042
     Dates: start: 20250801
  8. ACETAMINOPHEN [Concomitant]
     Active Substance: ACETAMINOPHEN
     Indication: Premedication
     Dosage: 650 MG, 15-30 MINS PRIOR TO INFUSION
     Route: 048
  9. ACETAMINOPHEN [Concomitant]
     Active Substance: ACETAMINOPHEN
     Dosage: 325-650MG, AS NEEDED (PRN)
     Route: 048
  10. BENADRYL [Concomitant]
     Active Substance: DIPHENHYDRAMINE HYDROCHLORIDE
     Dosage: UNK
  11. DIMENHYDRINATE [Concomitant]
     Active Substance: DIMENHYDRINATE
     Dosage: 25-50 PO/IV, AS NEEDED (PRN)
  12. DIPHENHYDRAMINE [Concomitant]
     Active Substance: DIPHENHYDRAMINE
     Indication: Premedication
     Dosage: 50 MG, 15-30 MINS PRIOR TO INFUSION
     Route: 048
  13. DIPHENHYDRAMINE [Concomitant]
     Active Substance: DIPHENHYDRAMINE
     Dosage: UNK, 25-50MG PO/IV, AS NEEDED (PRN)
  14. EPINEPHRINE [Concomitant]
     Active Substance: EPINEPHRINE
     Dosage: (1:1000) 0.001ML/KG (MAX 0.5ML) SC/IM, AS NEEDED (PRN)
  15. HYDROCORTISONE [Concomitant]
     Active Substance: HYDROCORTISONE
     Dosage: 100 MG, AS NEEDED (PRN)
     Route: 042
  16. METHYLPREDNISOLONE [Concomitant]
     Active Substance: METHYLPREDNISOLONE
     Indication: Premedication
     Dosage: 100 MG, IN 50ML 0.9 PERCENT SODIUM CHLORIDE INJECTION, 15-30 MIN PRIOR TO INFUSION
     Route: 042
  17. OXYGEN [Concomitant]
     Active Substance: OXYGEN
     Dosage: UNK, AS NEEDED, VIA MASK/NASAL PRONG, AS NEEDED (PRN)
  18. PREDNISONE [Concomitant]
     Active Substance: PREDNISONE
     Dosage: UNK
  19. ALBUTEROL [Concomitant]
     Active Substance: ALBUTEROL
     Dosage: UNK, AS NEEDED, 2 PUFFS, Q4-6 HRS VIA AEROCHAMBER, AS NEEDED
  20. SODIUM CHLORIDE [Concomitant]
     Active Substance: SODIUM CHLORIDE
     Indication: Premedication
     Dosage: 50 ML
     Route: 042
  21. SULFAMETHOXAZOLE\TRIMETHOPRIM [Concomitant]
     Active Substance: SULFAMETHOXAZOLE\TRIMETHOPRIM
     Dosage: UNK

REACTIONS (11)
  - Crohn^s disease [Unknown]
  - Heart rate irregular [Recovered/Resolved]
  - Cardiac disorder [Recovered/Resolved]
  - Palpitations [Recovered/Resolved]
  - Asthenia [Recovered/Resolved]
  - Condition aggravated [Unknown]
  - Cough [Recovering/Resolving]
  - Drug ineffective [Unknown]
  - Incorrect dose administered [Unknown]
  - Inappropriate schedule of product administration [Unknown]
  - Off label use [Unknown]

NARRATIVE: CASE EVENT DATE: 20230320
